FAERS Safety Report 6412884-6 (Version None)
Quarter: 2009Q4

REPORT INFORMATION
  Report Type: 
  Country: None (occurrence: None)
  Receive Date: 20091023
  Receipt Date: 20091014
  Transmission Date: 20100525
  Serious: Yes (Other)
  Sender: FDA-Public Use
  Company Number: PHHY2009JP45023

PATIENT
  Age: 47 Year
  Sex: Male

DRUGS (2)
  1. CYCLOSPORINE [Suspect]
     Indication: CORD BLOOD TRANSPLANT THERAPY
  2. METHOTREXATE [Concomitant]
     Indication: PROPHYLAXIS AGAINST GRAFT VERSUS HOST DISEASE

REACTIONS (6)
  - CYTOMEGALOVIRUS VIRAEMIA [None]
  - ENGRAFTMENT SYNDROME [None]
  - MESANGIOPROLIFERATIVE GLOMERULONEPHRITIS [None]
  - ORGANISING PNEUMONIA [None]
  - SEPSIS [None]
  - THROMBOTIC MICROANGIOPATHY [None]
